FAERS Safety Report 25567599 (Version 1)
Quarter: 2025Q3

REPORT INFORMATION
  Report Type: Spontaneous
  Country: US (occurrence: US)
  Receive Date: 20250716
  Receipt Date: 20250716
  Transmission Date: 20251021
  Serious: No
  Sender: NOVO NORDISK
  Company Number: US-NOVOPROD-1272433

PATIENT
  Sex: Female

DRUGS (1)
  1. OZEMPIC [Suspect]
     Active Substance: SEMAGLUTIDE
     Indication: Blood glucose increased
     Dosage: 0.5 MG, QW
     Route: 058
     Dates: start: 20240531

REACTIONS (4)
  - Body temperature decreased [Recovered/Resolved with Sequelae]
  - Feeling cold [Unknown]
  - Urinary tract infection [Unknown]
  - Drug titration error [Unknown]
